FAERS Safety Report 6408348-6 (Version None)
Quarter: 2009Q4

REPORT INFORMATION
  Report Type: 
  Country: None (occurrence: None)
  Receive Date: 20091021
  Receipt Date: 20091014
  Transmission Date: 20100525
  Serious: Yes (Hospitalization)
  Sender: FDA-Public Use
  Company Number: PHHO2007US16736

PATIENT
  Sex: Female

DRUGS (7)
  1. RAD 666 RAD+TAB+PTR [Suspect]
     Indication: RENAL TRANSPLANT
     Dosage: 3.75 MG/DAILY
     Route: 048
  2. RAD 666 RAD+TAB+PTR [Suspect]
     Dosage: 1.5 MG, Q12H
     Route: 048
  3. NEORAL [Suspect]
     Indication: RENAL TRANSPLANT
     Dosage: 50 MG, Q12H
     Route: 048
  4. NEORAL [Suspect]
     Dosage: 50MG + 25 MG DAILY
     Route: 048
  5. DDAVP [Suspect]
  6. LISINOPRIL [Concomitant]
  7. LASIX [Concomitant]

REACTIONS (19)
  - ABDOMINAL PAIN [None]
  - ARTERIOSCLEROSIS [None]
  - BLOOD CREATININE INCREASED [None]
  - CELLULITIS [None]
  - CELLULITIS STAPHYLOCOCCAL [None]
  - CHRONIC ALLOGRAFT NEPHROPATHY [None]
  - DEEP VEIN THROMBOSIS [None]
  - ERYTHEMA [None]
  - HYPERSENSITIVITY [None]
  - LYMPHOEDEMA [None]
  - NAUSEA [None]
  - OEDEMA PERIPHERAL [None]
  - PAIN [None]
  - PAIN IN EXTREMITY [None]
  - PYELOCALIECTASIS [None]
  - RENAL FAILURE ACUTE [None]
  - RENAL TUBULAR NECROSIS [None]
  - SWOLLEN TONGUE [None]
  - VOMITING [None]
